FAERS Safety Report 25845964 (Version 2)
Quarter: 2025Q4

REPORT INFORMATION
  Report Type: Report from Study
  Country: IN (occurrence: IN)
  Receive Date: 20250925
  Receipt Date: 20251022
  Transmission Date: 20260117
  Serious: Yes (Other)
  Sender: CIPLA
  Company Number: IN-CIPLA LTD.-2025IN11045

PATIENT

DRUGS (2)
  1. TORSEMIDE [Suspect]
     Active Substance: TORSEMIDE
     Indication: Diuretic therapy
     Dosage: 20 MILLIGRAM, (FREQUENCY: 1) UNITS UNSPECIFIED
     Route: 048
     Dates: start: 2023, end: 202510
  2. METOPROLOL SUCCINATE [Suspect]
     Active Substance: METOPROLOL SUCCINATE
     Indication: Blood pressure abnormal
     Dosage: 50 MILLIGRAM, (FREQUENCY: 1) UNITS UNSPECIFIED
     Route: 048
     Dates: start: 2023, end: 202510

REACTIONS (4)
  - Thrombosis [Unknown]
  - Hypertension [Not Recovered/Not Resolved]
  - Vision blurred [Unknown]
  - Drug ineffective [Unknown]

NARRATIVE: CASE EVENT DATE: 20250701
